FAERS Safety Report 12830299 (Version 1)
Quarter: 2016Q4

REPORT INFORMATION
  Report Type: Spontaneous
  Country: US (occurrence: US)
  Receive Date: 20161007
  Receipt Date: 20161007
  Transmission Date: 20170207
  Serious: No
  Sender: FDA-Public Use
  Company Number: US-SA-2016SA164609

PATIENT
  Age: 55 Year
  Sex: Male

DRUGS (6)
  1. XANAX [Concomitant]
     Active Substance: ALPRAZOLAM
  2. ASA [Concomitant]
     Active Substance: ASPIRIN
  3. PREVIDENT [Concomitant]
     Active Substance: SODIUM FLUORIDE
  4. AUBAGIO [Suspect]
     Active Substance: TERIFLUNOMIDE
     Indication: MULTIPLE SCLEROSIS
     Route: 048
     Dates: start: 201603
  5. TRAMADOL. [Concomitant]
     Active Substance: TRAMADOL
  6. ESCITALOPRAM [Concomitant]
     Active Substance: ESCITALOPRAM OXALATE

REACTIONS (1)
  - Diarrhoea [Unknown]

NARRATIVE: CASE EVENT DATE: 2016
